FAERS Safety Report 10243169 (Version 1)
Quarter: 2014Q2

REPORT INFORMATION
  Report Type: Spontaneous
  Country: US (occurrence: None)
  Receive Date: 20140616
  Receipt Date: 20140616
  Transmission Date: 20141212
  Serious: Yes (Other)
  Sender: FDA-Public Use
  Company Number: AUR-APL-2014-06382

PATIENT
  Age: 27 Year
  Sex: Female

DRUGS (2)
  1. QUETIAPINE [Suspect]
     Indication: DEPRESSED MOOD
  2. QUETIAPINE [Suspect]
     Indication: PARANOIA

REACTIONS (7)
  - Syncope [None]
  - Vision blurred [None]
  - Fall [None]
  - Loss of consciousness [None]
  - Blood pressure decreased [None]
  - Heart rate decreased [None]
  - Vomiting [None]
